FAERS Safety Report 14073861 (Version 1)
Quarter: 2017Q4

REPORT INFORMATION
  Report Type: Spontaneous
  Country: IT (occurrence: IT)
  Receive Date: 20171011
  Receipt Date: 20171011
  Transmission Date: 20180321
  Serious: Yes (Other)
  Sender: FDA-Public Use
  Company Number: IT-PFIZER INC-2017431679

PATIENT
  Age: 39 Year
  Sex: Male

DRUGS (3)
  1. CARBOLITHIUM [Suspect]
     Active Substance: LITHIUM CARBONATE
     Dosage: 300 MG, TOTAL
     Dates: start: 20170824, end: 20170824
  2. XANAX [Suspect]
     Active Substance: ALPRAZOLAM
     Dosage: 5 DF, UNK
     Dates: start: 20170824, end: 20170824
  3. PAROXETINE. [Suspect]
     Active Substance: PAROXETINE
     Dosage: 40 MG, UNK
     Route: 048
     Dates: start: 20170824, end: 20170824

REACTIONS (3)
  - Toxicity to various agents [Recovering/Resolving]
  - Drug abuse [Recovering/Resolving]
  - Sopor [Recovering/Resolving]

NARRATIVE: CASE EVENT DATE: 20170824
